FAERS Safety Report 7318141-8 (Version None)
Quarter: 2011Q1

REPORT INFORMATION
  Report Type: 
  Country: None (occurrence: None)
  Receive Date: 20110228
  Receipt Date: 20110209
  Transmission Date: 20110831
  Serious: No
  Sender: FDA-Public Use
  Company Number: US-BIOGENIDEC-2011BI000946

PATIENT
  Age: 66 Year
  Sex: Female
  Weight: 55 kg

DRUGS (5)
  1. TYSABRI [Suspect]
     Indication: MULTIPLE SCLEROSIS
     Route: 042
     Dates: start: 20080623
  2. EVISTA [Concomitant]
  3. BACLOFEN [Concomitant]
  4. TRETINOIN FACIAL CREAM [Concomitant]
  5. AMINOPYRIDINE [Concomitant]
     Indication: GAIT DISTURBANCE

REACTIONS (9)
  - INSOMNIA [None]
  - NAUSEA [None]
  - URINARY INCONTINENCE [None]
  - TREMOR [None]
  - NERVOUSNESS [None]
  - TENSION [None]
  - MULTIPLE SCLEROSIS [None]
  - VOMITING [None]
  - PALPITATIONS [None]
